FAERS Safety Report 7608825-6 (Version None)
Quarter: 2011Q3

REPORT INFORMATION
  Report Type: 
  Country: None (occurrence: None)
  Receive Date: 20110714
  Receipt Date: 20110629
  Transmission Date: 20111222
  Serious: Yes (Other)
  Sender: FDA-Public Use
  Company Number: DE-WATSON-2011-09635

PATIENT
  Age: 52 Year
  Sex: Male

DRUGS (1)
  1. ALENDRONATE SODIUM [Suspect]
     Indication: PRODUCT USED FOR UNKNOWN INDICATION
     Dosage: UNK
     Route: 048
     Dates: start: 20070401, end: 20080401

REACTIONS (3)
  - OSTEONECROSIS OF JAW [None]
  - TOOTH EXTRACTION [None]
  - ALVEOLITIS [None]
